FAERS Safety Report 7117637-1 (Version None)
Quarter: 2010Q4

REPORT INFORMATION
  Report Type: 
  Country: None (occurrence: None)
  Receive Date: 20101122
  Receipt Date: 20101117
  Transmission Date: 20110411
  Serious: Yes (Hospitalization)
  Sender: FDA-Public Use
  Company Number: US-BRISTOL-MYERS SQUIBB COMPANY-15394216

PATIENT
  Age: 66 Year
  Sex: Female
  Weight: 127 kg

DRUGS (8)
  1. CYCLOPHOSPHAMIDE [Suspect]
     Indication: BREAST CANCER FEMALE
     Route: 042
     Dates: start: 20100716
  2. PACLITAXEL [Suspect]
     Indication: BREAST CANCER FEMALE
     Route: 042
     Dates: start: 20101006
  3. DOXORUBICIN HCL [Suspect]
     Indication: BREAST CANCER FEMALE
     Route: 042
     Dates: start: 20100716
  4. LISINOPRIL [Concomitant]
     Indication: HYPERTENSION
     Dates: start: 20100101
  5. LORAZEPAM [Concomitant]
     Indication: DEPRESSION
     Dates: start: 20070101
  6. PRAVASTATIN SODIUM [Concomitant]
     Indication: HYPERCHOLESTEROLAEMIA
     Dates: start: 20100101
  7. DICLOFENAC SODIUM [Concomitant]
     Indication: ARTHRITIS
     Dates: start: 20100101
  8. OMEPRAZOLE [Concomitant]
     Indication: GASTROOESOPHAGEAL REFLUX DISEASE
     Dates: start: 20100101

REACTIONS (4)
  - ASTHENIA [None]
  - DEHYDRATION [None]
  - HYPOTENSION [None]
  - RENAL FAILURE ACUTE [None]
